FAERS Safety Report 8990079 (Version 5)
Quarter: 2013Q3

REPORT INFORMATION
  Report Type: Spontaneous
  Country: JP (occurrence: JP)
  Receive Date: 20121228
  Receipt Date: 20130816
  Transmission Date: 20140515
  Serious: Yes (Hospitalization, Other)
  Sender: FDA-Public Use
  Company Number: JP-UCBSA-073945

PATIENT
  Age: 27 Year
  Sex: Male
  Weight: 45 kg

DRUGS (7)
  1. E KEPPRA [Suspect]
     Indication: CONVULSION
     Route: 048
     Dates: start: 201210, end: 20121218
  2. MERCAZOLE [Suspect]
     Indication: HYPERTHYROIDISM
     Dosage: DAILY DOSE: 2.5 MG
     Route: 048
     Dates: start: 20121101, end: 20121105
  3. MERCAZOLE [Suspect]
     Indication: HYPERTHYROIDISM
     Dosage: DAILY DOSE: 5 MG
     Route: 048
     Dates: start: 20121106, end: 20121119
  4. MERCAZOLE [Suspect]
     Indication: HYPERTHYROIDISM
     Dosage: DAILY DOSE: 10 MG
     Route: 048
     Dates: start: 20121120, end: 20121128
  5. EXCEGRAN [Suspect]
     Indication: CONVULSION
     Route: 048
     Dates: start: 201210, end: 20121218
  6. GASTER [Concomitant]
     Dosage: DAILY DOSE: 40 MG/DAY
     Route: 048
     Dates: start: 20121025
  7. BIOFERMIN [Concomitant]
     Dosage: DAILY DOSE: 24 MG/DAY
     Route: 048
     Dates: start: 20121025

REACTIONS (3)
  - Agranulocytosis [Recovered/Resolved]
  - Infection [Recovered/Resolved]
  - Anaemia [Not Recovered/Not Resolved]
